FAERS Safety Report 23446841 (Version 1)
Quarter: 2024Q1

REPORT INFORMATION
  Report Type: Spontaneous
  Country: US (occurrence: None)
  Receive Date: 20240125
  Receipt Date: 20240125
  Transmission Date: 20240410
  Serious: Yes (Other)
  Sender: FDA-Public Use
  Company Number: None

PATIENT
  Sex: Male

DRUGS (9)
  1. RINVOQ [Suspect]
     Active Substance: UPADACITINIB
     Indication: Rheumatoid arthritis
     Route: 048
     Dates: start: 20231201
  2. CALCIUM [Concomitant]
  3. D3-1000 [Concomitant]
  4. FISH OIL CAP [Concomitant]
  5. MULTIVITAMIN TAB [Concomitant]
  6. PLAQUENIL [Concomitant]
  7. PREDNISONE [Concomitant]
     Active Substance: PREDNISONE
  8. SIMPONI 50MG/0.5ML SMARTJECT [Concomitant]
  9. VITAMIN C TAB [Concomitant]

REACTIONS (2)
  - Surgery [None]
  - Intentional dose omission [None]
